FAERS Safety Report 7093389-9 (Version None)
Quarter: 2010Q4

REPORT INFORMATION
  Report Type: 
  Country: None (occurrence: None)
  Receive Date: 20101110
  Receipt Date: 20101027
  Transmission Date: 20110411
  Serious: Yes (Other)
  Sender: FDA-Public Use
  Company Number: PHHY2010JP73208

PATIENT
  Sex: Female
  Weight: 62 kg

DRUGS (4)
  1. DIOVAN [Suspect]
     Indication: HYPERTENSION
     Dosage: 80 MG, QD
     Route: 048
     Dates: start: 20080702
  2. OLMETEC [Concomitant]
     Dosage: 10 MG
     Route: 048
     Dates: start: 20080604, end: 20080702
  3. AZELASTINE HCL [Concomitant]
     Dosage: 8 MG
     Route: 048
     Dates: start: 20080530
  4. SUNRYTHM [Concomitant]
     Dosage: 150 MG
     Route: 048
     Dates: start: 20090803

REACTIONS (3)
  - BLOOD PRESSURE DIASTOLIC DECREASED [None]
  - PALPITATIONS [None]
  - SINUS TACHYCARDIA [None]
